FAERS Safety Report 20367846 (Version 1)
Quarter: 2022Q1

REPORT INFORMATION
  Report Type: Spontaneous
  Country: FR (occurrence: FR)
  Receive Date: 20220124
  Receipt Date: 20220124
  Transmission Date: 20220423
  Serious: Yes (Other)
  Sender: FDA-Public Use
  Company Number: FR-AFSSAPS-RN20220053

PATIENT
  Age: 69 Year
  Sex: Male
  Weight: 101 kg

DRUGS (1)
  1. TRAMADOL [Suspect]
     Active Substance: TRAMADOL
     Indication: Analgesic intervention supportive therapy
     Dosage: UNK(3X/J)
     Route: 048
     Dates: start: 20211210, end: 20211213

REACTIONS (1)
  - Face oedema [Recovering/Resolving]

NARRATIVE: CASE EVENT DATE: 20211214
